FAERS Safety Report 6221953-5 (Version None)
Quarter: 2009Q2

REPORT INFORMATION
  Report Type: 
  Country: None (occurrence: None)
  Receive Date: 20090608
  Receipt Date: 20090608
  Transmission Date: 20091009
  Serious: No
  Sender: FDA-Public Use
  Company Number: None

PATIENT
  Sex: Female

DRUGS (14)
  1. REVLIMID [Suspect]
     Indication: MULTIPLE MYELOMA
     Dosage: 25 X 21 DAYS ORALLY
     Route: 048
     Dates: start: 20090506, end: 20090508
  2. MELOPROLOL [Concomitant]
  3. PAMIDIONATE [Concomitant]
  4. NORTRIPYLINE [Concomitant]
  5. OMEPRAZOLE [Concomitant]
  6. PREDNIZONE [Concomitant]
  7. FENTANYL [Concomitant]
  8. HYDROCODONE BITARTRATE + ACETAMINOPHEN [Concomitant]
  9. AMLODIPINE [Concomitant]
  10. SIMVASTATIN [Concomitant]
  11. ALBERAN [Concomitant]
  12. FLUTICASONE [Concomitant]
  13. OVAL [Concomitant]
  14. SEE IMAGE [Concomitant]

REACTIONS (1)
  - PAIN [None]
